FAERS Safety Report 9256102 (Version 1)
Quarter: 2013Q2

REPORT INFORMATION
  Report Type: Spontaneous
  Country: US (occurrence: US)
  Receive Date: 20130425
  Receipt Date: 20130425
  Transmission Date: 20140414
  Serious: No
  Sender: FDA-Public Use
  Company Number: US-AMGEN-USASP2011053098

PATIENT
  Age: 61 Year
  Sex: Female
  Weight: 118.82 kg

DRUGS (8)
  1. NEULASTA [Suspect]
     Indication: CHEMOTHERAPY
     Dosage: 6 MG, Q3WK
     Dates: start: 20111007, end: 20111012
  2. THYROID [Concomitant]
  3. XENICAL [Concomitant]
  4. PRECOSE [Concomitant]
  5. METFORMIN [Concomitant]
  6. TAXOL [Concomitant]
     Indication: OESOPHAGEAL CARCINOMA
     Dosage: 120 MG, 3 TIMES/WK
     Dates: start: 20110921, end: 20120118
  7. CISPLATIN [Concomitant]
     Indication: OESOPHAGEAL CARCINOMA
     Dosage: 60 MG, 3 TIMES/WK
     Dates: start: 20110921, end: 20120118
  8. XELODA [Concomitant]
     Indication: OESOPHAGEAL CARCINOMA
     Dosage: UNK
     Dates: start: 20110921, end: 20120118

REACTIONS (8)
  - Joint swelling [Recovered/Resolved]
  - Joint effusion [Recovered/Resolved]
  - Abasia [Recovering/Resolving]
  - Joint lock [Recovering/Resolving]
  - Musculoskeletal stiffness [Recovering/Resolving]
  - Drug hypersensitivity [Unknown]
  - Headache [Unknown]
  - Bone pain [Unknown]
